FAERS Safety Report 7208736-4 (Version None)
Quarter: 2010Q4

REPORT INFORMATION
  Report Type: 
  Country: None (occurrence: None)
  Receive Date: 20101222
  Receipt Date: 20101207
  Transmission Date: 20110411
  Serious: Yes (Hospitalization)
  Sender: FDA-Public Use
  Company Number: 2010US000084

PATIENT
  Age: 66 Year
  Sex: Female

DRUGS (1)
  1. ENTEREG [Suspect]
     Indication: POSTOPERATIVE ILEUS
     Dosage: 12 MG
     Dates: start: 20100801, end: 20100901

REACTIONS (3)
  - HYPOTENSION [None]
  - HYPOVOLAEMIA [None]
  - PULMONARY EMBOLISM [None]
